FAERS Safety Report 18596311 (Version 1)
Quarter: 2020Q4

REPORT INFORMATION
  Report Type: Spontaneous
  Country: IT (occurrence: IT)
  Receive Date: 20201209
  Receipt Date: 20201209
  Transmission Date: 20210114
  Serious: Yes (Other)
  Sender: FDA-Public Use
  Company Number: IT-ELI_LILLY_AND_COMPANY-IT202012000420

PATIENT
  Age: 70 Year
  Sex: Female

DRUGS (3)
  1. DIBASE [Concomitant]
     Active Substance: CHOLECALCIFEROL
     Indication: PRODUCT USED FOR UNKNOWN INDICATION
  2. FORSTEO 250UG/ML [Suspect]
     Active Substance: TERIPARATIDE
     Indication: OSTEOPOROSIS
     Dosage: UNK UNK, UNKNOWN
     Route: 065
     Dates: start: 20181214
  3. FORSTEO 250UG/ML [Suspect]
     Active Substance: TERIPARATIDE
     Indication: OSTEOPOROSIS
     Dosage: UNK UNK, UNKNOWN
     Route: 065
     Dates: start: 20181214

REACTIONS (9)
  - Dyspnoea [Unknown]
  - Balance disorder [Unknown]
  - Eye swelling [Unknown]
  - Injection site swelling [Recovering/Resolving]
  - Tachycardia [Unknown]
  - Insomnia [Unknown]
  - Alopecia [Unknown]
  - Ocular hyperaemia [Unknown]
  - Eye discharge [Unknown]
